FAERS Safety Report 7454327-X (Version None)
Quarter: 2011Q2

REPORT INFORMATION
  Report Type: 
  Country: None (occurrence: None)
  Receive Date: 20110503
  Receipt Date: 20110421
  Transmission Date: 20111010
  Serious: Yes (Other)
  Sender: FDA-Public Use
  Company Number: JP-JNJFOC-20110411571

PATIENT
  Age: 20 Year
  Sex: Male

DRUGS (3)
  1. CRAVIT [Suspect]
     Indication: INFECTION PROPHYLAXIS
     Route: 048
  2. MARZULENE-S [Concomitant]
  3. PONTAL [Concomitant]

REACTIONS (3)
  - ANXIETY [None]
  - PROTRUSION TONGUE [None]
  - EYE MOVEMENT DISORDER [None]
